FAERS Safety Report 5476742-6 (Version None)
Quarter: 2007Q4

REPORT INFORMATION
  Report Type: 
  Country: None (occurrence: None)
  Receive Date: 20071002
  Receipt Date: 20071002
  Transmission Date: 20080405
  Serious: Yes (Disabling)
  Sender: FDA-Public Use
  Company Number: None

PATIENT
  Sex: Female
  Weight: 43.9989 kg

DRUGS (1)
  1. FLUOXETINE [Suspect]
     Indication: POST-TRAUMATIC STRESS DISORDER
     Dosage: 5 MG/DAY X 1 WK THEN 10MG/DAY X 3 WKS
     Dates: start: 20070810, end: 20070913

REACTIONS (4)
  - AKATHISIA [None]
  - DYSKINESIA [None]
  - HYPERREFLEXIA [None]
  - INTENTION TREMOR [None]
